FAERS Safety Report 11061484 (Version 1)
Quarter: 2015Q2

REPORT INFORMATION
  Report Type: Spontaneous
  Country: US (occurrence: None)
  Receive Date: 20150423
  Receipt Date: 20150423
  Transmission Date: 20150821
  Serious: Yes (Disabling)
  Sender: FDA-Public Use
  Company Number: None

PATIENT
  Age: 79 Year
  Sex: Female
  Weight: 62.3 kg

DRUGS (2)
  1. ASPIRIN 81 MG [Suspect]
     Active Substance: ASPIRIN
     Indication: RENAL ANEURYSM
     Route: 048
  2. CLOPIDOGREL [Suspect]
     Active Substance: CLOPIDOGREL BISULFATE
     Indication: RENAL ANEURYSM
     Route: 048

REACTIONS (5)
  - Subarachnoid haemorrhage [None]
  - Syncope [None]
  - Confusional state [None]
  - Subdural haematoma [None]
  - Brain oedema [None]

NARRATIVE: CASE EVENT DATE: 20140424
